FAERS Safety Report 23549041 (Version 5)
Quarter: 2024Q2

REPORT INFORMATION
  Report Type: Spontaneous
  Country: PK (occurrence: PK)
  Receive Date: 20240221
  Receipt Date: 20240606
  Transmission Date: 20240716
  Serious: Yes (Hospitalization, Other)
  Sender: FDA-Public Use
  Company Number: PK-PFIZER INC-PV202300209593

PATIENT
  Age: 35 Year
  Sex: Female
  Weight: 115 kg

DRUGS (16)
  1. IXIFI [Suspect]
     Active Substance: INFLIXIMAB-QBTX
     Indication: Rheumatoid arthritis
     Dosage: 400 MG, EVERY 4 WEEKS
     Route: 042
     Dates: start: 202312
  2. IXIFI [Suspect]
     Active Substance: INFLIXIMAB-QBTX
     Indication: Crohn^s disease
     Dosage: 400 MG, MONTHLY
     Route: 042
     Dates: start: 202312
  3. IXIFI [Suspect]
     Active Substance: INFLIXIMAB-QBTX
     Indication: Sarcoidosis
  4. IXIFI [Suspect]
     Active Substance: INFLIXIMAB-QBTX
     Indication: Undifferentiated connective tissue disease
  5. IXIFI [Suspect]
     Active Substance: INFLIXIMAB-QBTX
     Indication: Interstitial lung disease
  6. DELTACORTRIL [Concomitant]
     Active Substance: PREDNISOLONE
     Dosage: 2.5 MG, 1X/DAY, HALF TAB IN MORNING
  7. EZIDAY [Concomitant]
     Dosage: 50 MG, 1X/DAY, 1+0 IN MORNING
  8. SERT [Concomitant]
     Dosage: 2X/DAY, MORNING AND EVENING
  9. SERT [Concomitant]
     Dosage: 200 MG, 1X/DAY, 0+1 AT NIGHT
  10. XOBIX [Concomitant]
     Dosage: 2X/DAY, MORNING AND EVENING
  11. NEORAL [Concomitant]
     Active Substance: CYCLOSPORINE
     Dosage: 4X/DAY, MORNING AND EVENING
  12. NEORAL [Concomitant]
     Active Substance: CYCLOSPORINE
     Dosage: 100 MG, 1X/DAY, 1+0 IN MORNING
  13. NEOGAB [Concomitant]
     Dosage: 300 MG, 2X/DAY, 1+1, 2 TIMES A DAY
  14. NEXIUM [Concomitant]
     Active Substance: ESOMEPRAZOLE MAGNESIUM
     Dosage: 40 MG, 1X/DAY, 1+0  IN MORNING
  15. BISOPROLOL FUMARATE [Concomitant]
     Active Substance: BISOPROLOL FUMARATE
     Dosage: 2.5 MG, 1X/DAY, 1+0 IN MORNING
  16. SOLIFEN [Concomitant]
     Dosage: UNK

REACTIONS (4)
  - Soft tissue surgery [Recovering/Resolving]
  - Accident [Recovering/Resolving]
  - Off label use [Unknown]
  - Off label use [Unknown]

NARRATIVE: CASE EVENT DATE: 20231201
